FAERS Safety Report 13463414 (Version 1)
Quarter: 2017Q2

REPORT INFORMATION
  Report Type: Spontaneous
  Country: US (occurrence: US)
  Receive Date: 20170420
  Receipt Date: 20170420
  Transmission Date: 20170830
  Serious: Yes (Hospitalization, Other)
  Sender: FDA-Public Use
  Company Number: PHHY2017US056329

PATIENT
  Age: 39 Year
  Sex: Female

DRUGS (1)
  1. METHYLPREDNISOLONE. [Suspect]
     Active Substance: METHYLPREDNISOLONE
     Indication: MULTIPLE SCLEROSIS
     Dosage: 5 DAYS
     Route: 042

REACTIONS (4)
  - Vertigo [Recovering/Resolving]
  - Herpes simplex [Recovering/Resolving]
  - Deafness [Recovering/Resolving]
  - Encephalomyelitis [Recovering/Resolving]
